FAERS Safety Report 8603486-1 (Version None)
Quarter: 2012Q3

REPORT INFORMATION
  Report Type: 
  Country: None (occurrence: None)
  Receive Date: 20120817
  Receipt Date: 20120806
  Transmission Date: 20120928
  Serious: Yes (Hospitalization)
  Sender: FDA-Public Use
  Company Number: KR-ELI_LILLY_AND_COMPANY-KR201208002856

PATIENT
  Age: 69 Year
  Sex: Female

DRUGS (5)
  1. DRUG USED IN DIABETES [Concomitant]
     Indication: TYPE 2 DIABETES MELLITUS
  2. LIPID MODIFYING AGENTS [Concomitant]
     Indication: HYPERLIPIDAEMIA
  3. BYETTA [Suspect]
     Dosage: 10 UG, BID
     Route: 058
     Dates: start: 20120729
  4. ANTIHYPERTENSIVES [Concomitant]
     Indication: HYPERTENSION
  5. BYETTA [Suspect]
     Indication: TYPE 2 DIABETES MELLITUS
     Dosage: 5 UG, BID
     Route: 058
     Dates: start: 20120704, end: 20120728

REACTIONS (2)
  - HUMERUS FRACTURE [None]
  - FALL [None]
